FAERS Safety Report 8480340-X (Version None)
Quarter: 2012Q2

REPORT INFORMATION
  Report Type: 
  Country: None (occurrence: None)
  Receive Date: 20120630
  Receipt Date: 20120620
  Transmission Date: 20120825
  Serious: Yes (Hospitalization)
  Sender: FDA-Public Use
  Company Number: IT-TEVA-344983ISR

PATIENT
  Sex: Female

DRUGS (6)
  1. VENLAFAXINA DOC GENERICI [Concomitant]
  2. LITHIUM CARBONATE [Suspect]
     Indication: MAJOR DEPRESSION
     Dosage: 300 MILLIGRAM;
     Route: 048
     Dates: start: 20120514, end: 20120530
  3. ZARELIS [Concomitant]
     Route: 048
  4. CLONAZEPAM [Concomitant]
  5. LAMOTRIGINE [Concomitant]
     Route: 048
  6. SEROQUEL [Concomitant]

REACTIONS (4)
  - ENURESIS [None]
  - CONFUSIONAL STATE [None]
  - ASTHENIA [None]
  - ACCIDENTAL OVERDOSE [None]
